FAERS Safety Report 8516753 (Version 2)
Quarter: 2013Q4

REPORT INFORMATION
  Report Type: Spontaneous
  Country: US (occurrence: US)
  Receive Date: 20120417
  Receipt Date: 20131220
  Transmission Date: 20140711
  Serious: No
  Sender: FDA-Public Use
  Company Number: US-B.I. PHARMACEUTICALS,INC./RIDGEFIELD-2012-BP-06745BP

PATIENT
  Age: 87 Year
  Sex: Female

DRUGS (4)
  1. SPIRIVA HANDIHALER [Suspect]
     Indication: EMPHYSEMA
     Dosage: 18 MCG
     Route: 055
     Dates: start: 2011
  2. SPIRIVA HANDIHALER [Suspect]
     Dosage: 18 MCG
     Route: 055
     Dates: start: 201309
  3. PRADAXA [Concomitant]
     Indication: ATRIAL FIBRILLATION
     Route: 048
  4. OXYGEN [Concomitant]
     Indication: EMPHYSEMA
     Route: 045

REACTIONS (5)
  - Swelling face [Not Recovered/Not Resolved]
  - Swollen tongue [Not Recovered/Not Resolved]
  - Sputum increased [Not Recovered/Not Resolved]
  - Dry mouth [Not Recovered/Not Resolved]
  - Dysphagia [Not Recovered/Not Resolved]
